FAERS Safety Report 9594273 (Version 1)
Quarter: 2013Q3

REPORT INFORMATION
  Report Type: Spontaneous
  Country: US (occurrence: None)
  Receive Date: 20130923
  Receipt Date: 20130923
  Transmission Date: 20140515
  Serious: Yes (Disabling, Other)
  Sender: FDA-Public Use
  Company Number: 2012ST000644

PATIENT
  Age: 36 Year
  Sex: Female

DRUGS (1)
  1. MATULANE [Suspect]
     Indication: MALIGNANT NEOPLASM OF SPINAL CORD
     Route: 048
     Dates: start: 2012

REACTIONS (1)
  - Peripheral paralysis [None]
